FAERS Safety Report 7044671-2 (Version None)
Quarter: 2010Q4

REPORT INFORMATION
  Report Type: 
  Country: None (occurrence: None)
  Receive Date: 20101014
  Receipt Date: 20100929
  Transmission Date: 20110411
  Serious: Yes (Hospitalization)
  Sender: FDA-Public Use
  Company Number: PHHY2010US65931

PATIENT
  Sex: Male

DRUGS (9)
  1. DIOVAN [Suspect]
     Dosage: 180 MG, UNK
  2. DIOVAN [Suspect]
     Dosage: 80 MG, UNK
  3. AVADEL [Concomitant]
  4. VYTORIN [Concomitant]
  5. TRICOR [Concomitant]
  6. NIACIN [Concomitant]
  7. BIAXIN [Concomitant]
  8. WATER PILLS [Concomitant]
  9. LOVAZA [Concomitant]

REACTIONS (5)
  - ASTHENIA [None]
  - BLOOD PRESSURE ABNORMAL [None]
  - DIZZINESS [None]
  - FEELING ABNORMAL [None]
  - HEART RATE INCREASED [None]
